FAERS Safety Report 11782274 (Version 2)
Quarter: 2015Q4

REPORT INFORMATION
  Report Type: Spontaneous
  Country: US (occurrence: US)
  Receive Date: 20151127
  Receipt Date: 20151222
  Transmission Date: 20160305
  Serious: Yes (Other)
  Sender: FDA-Public Use
  Company Number: US-UCBSA-2015030874

PATIENT
  Age: 68 Year
  Sex: Female
  Weight: 44 kg

DRUGS (1)
  1. CIMZIA [Suspect]
     Active Substance: CERTOLIZUMAB PEGOL
     Indication: CROHN^S DISEASE
     Dosage: 200 MG, EV 2 WEEKS(QOW) (EXPIRY DATE: JUN-2016)
     Route: 058
     Dates: start: 20090625, end: 20151120

REACTIONS (4)
  - Off label use [Unknown]
  - Road traffic accident [Recovering/Resolving]
  - Limb injury [Recovering/Resolving]
  - Influenza [Recovered/Resolved]

NARRATIVE: CASE EVENT DATE: 20090625
